FAERS Safety Report 7103285-6 (Version None)
Quarter: 2010Q4

REPORT INFORMATION
  Report Type: 
  Country: None (occurrence: None)
  Receive Date: 20101115
  Receipt Date: 20101109
  Transmission Date: 20110411
  Serious: Yes (Other)
  Sender: FDA-Public Use
  Company Number: NL-BRISTOL-MYERS SQUIBB COMPANY-15258049

PATIENT
  Age: 57 Year
  Sex: Male

DRUGS (5)
  1. CETUXIMAB [Suspect]
     Indication: NON-SMALL CELL LUNG CANCER
     Dosage: RECENT INF:27JUL2010 STRENGTH: 5MG/ML CUMULATIVE DOSE
     Route: 042
     Dates: start: 20100727, end: 20100727
  2. CISPLATIN [Suspect]
     Indication: NON-SMALL CELL LUNG CANCER
     Dosage: 5/7 DAYS ALSO ON 10AUG2010.CUMULATIVE DOSE
     Route: 042
     Dates: start: 20100802, end: 20100902
  3. LISINOPRIL [Concomitant]
  4. METOPROLOL [Concomitant]
  5. PRAVASTATIN [Concomitant]

REACTIONS (3)
  - ALANINE AMINOTRANSFERASE INCREASED [None]
  - BLOOD ALKALINE PHOSPHATASE INCREASED [None]
  - GAMMA-GLUTAMYLTRANSFERASE INCREASED [None]
